FAERS Safety Report 6899009-8 (Version None)
Quarter: 2010Q3

REPORT INFORMATION
  Report Type: 
  Country: None (occurrence: None)
  Receive Date: 20100802
  Receipt Date: 20071207
  Transmission Date: 20110219
  Serious: Yes (Other)
  Sender: FDA-Public Use
  Company Number: US-PFIZER INC-2007104399

PATIENT
  Sex: Female
  Weight: 81.6 kg

DRUGS (5)
  1. LYRICA [Suspect]
     Indication: PROCEDURAL PAIN
     Dates: start: 20071130, end: 20071206
  2. ZOLPIDEM TARTRATE [Concomitant]
  3. LAMICTAL [Concomitant]
  4. PERCOCET [Concomitant]
  5. LIDODERM [Concomitant]

REACTIONS (6)
  - COGNITIVE DISORDER [None]
  - CONFUSIONAL STATE [None]
  - FATIGUE [None]
  - FEELING ABNORMAL [None]
  - HEADACHE [None]
  - MANIA [None]
